FAERS Safety Report 5739639-X (Version None)
Quarter: 2008Q2

REPORT INFORMATION
  Report Type: 
  Country: None (occurrence: None)
  Receive Date: 20080513
  Receipt Date: 20080501
  Transmission Date: 20081010
  Serious: Yes (Other)
  Sender: FDA-Public Use
  Company Number: GXKR2008GB04134

PATIENT
  Age: 43 Year

DRUGS (4)
  1. GABAPENTIN [Suspect]
     Indication: NEURALGIA
     Dosage: 300 MG, TID, ORAL
     Route: 048
     Dates: start: 20080314, end: 20080403
  2. CARBOPLATIN [Concomitant]
  3. ETOPOSIDE [Concomitant]
  4. INFUMORPH [Concomitant]

REACTIONS (3)
  - EATING DISORDER [None]
  - MOUTH ULCERATION [None]
  - PAIN [None]
